FAERS Safety Report 23848088 (Version 1)
Quarter: 2024Q2

REPORT INFORMATION
  Report Type: Report from Study
  Country: CN (occurrence: CN)
  Receive Date: 20240513
  Receipt Date: 20240513
  Transmission Date: 20240715
  Serious: Yes (Life-Threatening)
  Sender: FDA-Public Use
  Company Number: CN-PFIZER INC-PV202400061177

PATIENT

DRUGS (1)
  1. AXITINIB [Suspect]
     Active Substance: AXITINIB
     Dosage: 5 MG, 2X/DAY
     Route: 048

REACTIONS (6)
  - Erythema [Unknown]
  - Hypertension [Unknown]
  - Nausea [Unknown]
  - Fatigue [Unknown]
  - Neutrophil count decreased [Unknown]
  - Diarrhoea [Unknown]
